FAERS Safety Report 20212289 (Version 1)
Quarter: 2021Q4

REPORT INFORMATION
  Report Type: Spontaneous
  Country: FR (occurrence: FR)
  Receive Date: 20211221
  Receipt Date: 20211221
  Transmission Date: 20220303
  Serious: Yes (Other)
  Sender: FDA-Public Use
  Company Number: FR-TEVA-2021-FR-1987729

PATIENT
  Age: 38 Year
  Sex: Female

DRUGS (1)
  1. COPAXONE [Suspect]
     Active Substance: GLATIRAMER ACETATE
     Dates: start: 20181130

REACTIONS (12)
  - Near death experience [Recovering/Resolving]
  - Facial paralysis [Recovering/Resolving]
  - Haemorrhage [Not Recovered/Not Resolved]
  - Adverse event [Recovering/Resolving]
  - Pain [Recovering/Resolving]
  - Hot flush [Recovering/Resolving]
  - Dyspnoea [Recovering/Resolving]
  - Renal pain [Recovering/Resolving]
  - Headache [Recovering/Resolving]
  - Movement disorder [Recovering/Resolving]
  - Asthenia [Recovering/Resolving]
  - Mass [Not Recovered/Not Resolved]

NARRATIVE: CASE EVENT DATE: 20211208
